FAERS Safety Report 23409260 (Version 1)
Quarter: 2024Q1

REPORT INFORMATION
  Report Type: Spontaneous
  Country: US (occurrence: None)
  Receive Date: 20240115
  Receipt Date: 20240115
  Transmission Date: 20240410
  Serious: Yes (Hospitalization)
  Sender: FDA-Public Use
  Company Number: None

PATIENT
  Age: 30 Year
  Sex: Female
  Weight: 129 kg

DRUGS (1)
  1. OZEMPIC [Suspect]
     Active Substance: SEMAGLUTIDE

REACTIONS (19)
  - Acute kidney injury [None]
  - Back pain [None]
  - Impaired gastric emptying [None]
  - Condition aggravated [None]
  - Nausea [None]
  - Vomiting [None]
  - Retching [None]
  - Productive cough [None]
  - Flank pain [None]
  - Lung infiltration [None]
  - Hypophagia [None]
  - Haematuria [None]
  - Blood creatinine increased [None]
  - Blood bilirubin increased [None]
  - Lipase increased [None]
  - Proteinuria [None]
  - Dehydration [None]
  - Pyelonephritis [None]
  - Nephrolithiasis [None]

NARRATIVE: CASE EVENT DATE: 20240108
